FAERS Safety Report 8809641 (Version 2)
Quarter: 2012Q4

REPORT INFORMATION
  Report Type: 
  Country: GB (occurrence: GB)
  Receive Date: 20120926
  Receipt Date: 20121001
  Transmission Date: 20130627
  Serious: Yes (Hospitalization)
  Sender: FDA-Public Use
  Company Number: GB-PFIZER INC-2012233415

PATIENT
  Age: 66 Year
  Sex: Male
  Weight: 103 kg

DRUGS (11)
  1. GENOTROPIN [Suspect]
     Indication: HYPOPITUITARISM
     Dosage: 0.2 mg, 1x/day, 7 injections/week
     Route: 058
     Dates: start: 20061009
  2. CABERGOLINE [Concomitant]
     Indication: ENDOCRINE DISORDER
     Dosage: UNK
     Dates: start: 20030509
  3. TESTOSTERONE ENANTHATE ^THERAMEX^ [Concomitant]
     Indication: BLOOD LUTEINISING HORMONE DECREASED
     Dosage: UNK
     Dates: start: 20041101
  4. TESTOSTERONE ENANTHATE ^THERAMEX^ [Concomitant]
     Indication: BLOOD FOLLICLE STIMULATING HORMONE DECREASED
  5. TESTOSTERONE ENANTHATE ^THERAMEX^ [Concomitant]
     Indication: HYPOGONADISM MALE
  6. THYROXINE [Concomitant]
     Indication: BLOOD THYROID STIMULATING HORMONE DECREASED
     Dosage: UNK
     Dates: start: 20060627
  7. THYROXINE [Concomitant]
     Indication: PRIMARY HYPOTHYROIDISM
  8. PERINDOPRIL [Concomitant]
     Indication: HYPERTENSION
     Dosage: UNK
     Dates: start: 20070701, end: 2009
  9. SIMVASTATIN [Concomitant]
     Indication: HYPERLIPIDAEMIA
     Dosage: UNK
     Dates: start: 20060515, end: 2009
  10. BENDROFLUMETHIAZIDE [Concomitant]
     Indication: ESSENTIAL HYPERTENSION
     Dosage: UNK
     Dates: start: 20070701, end: 2009
  11. FLUOXETINE [Concomitant]
     Indication: DYSTHYMIC DISORDER
     Dosage: UNK
     Dates: start: 20041101

REACTIONS (1)
  - Surgery [Unknown]
